FAERS Safety Report 25586439 (Version 2)
Quarter: 2025Q3

REPORT INFORMATION
  Report Type: Report from Study
  Country: US (occurrence: US)
  Receive Date: 20250721
  Receipt Date: 20250807
  Transmission Date: 20251020
  Serious: Yes (Hospitalization, Other)
  Sender: BAYER HEALTHCARE PHARMACEUTICALS INC.
  Company Number: US-BAYER-2025A094872

PATIENT
  Age: 83 Year
  Sex: Male

DRUGS (21)
  1. NUBEQA [Suspect]
     Active Substance: DAROLUTAMIDE
     Indication: Prostate cancer
     Dosage: 600 MG, BID
     Route: 048
     Dates: start: 20250711, end: 2025
  2. AVODART [Concomitant]
     Active Substance: DUTASTERIDE
  3. BICALUTAMIDE [Concomitant]
     Active Substance: BICALUTAMIDE
  4. CULTURELLE [Concomitant]
     Active Substance: LACTOBACILLUS RHAMNOSUS
  5. DEXAMETHASONE [Concomitant]
     Active Substance: DEXAMETHASONE
  6. FENOFIBRATE [Concomitant]
     Active Substance: FENOFIBRATE
  7. FINASTERIDE [Concomitant]
     Active Substance: FINASTERIDE
  8. GLIPIZIDE [Concomitant]
     Active Substance: GLIPIZIDE
  9. GLUCOTROL [Concomitant]
     Active Substance: GLIPIZIDE
  10. JANUVIA [Concomitant]
     Active Substance: SITAGLIPTIN PHOSPHATE
  11. JARDIANCE [Concomitant]
     Active Substance: EMPAGLIFLOZIN
  12. LISINOPRIL [Concomitant]
     Active Substance: LISINOPRIL
  13. MUPIROCIN [Concomitant]
     Active Substance: MUPIROCIN
  14. PHENAZOPYRIDINE HCL [Concomitant]
     Active Substance: PHENAZOPYRIDINE HYDROCHLORIDE
  15. Preservision areds 2 + multivitamin [Concomitant]
  16. ROSUVASTATIN CALCIUM [Concomitant]
     Active Substance: ROSUVASTATIN CALCIUM
  17. BACTRIM [Concomitant]
     Active Substance: SULFAMETHOXAZOLE\TRIMETHOPRIM
  18. TAMSULOSIN HYDROCHLORIDE [Concomitant]
     Active Substance: TAMSULOSIN HYDROCHLORIDE
  19. TRELEGY ELLIPTA [Concomitant]
     Active Substance: FLUTICASONE FUROATE\UMECLIDINIUM BROMIDE\VILANTEROL TRIFENATATE
  20. VITAMIN D3 [Concomitant]
     Active Substance: CHOLECALCIFEROL
  21. SULFAMETHOXAZOLE AND TRIMETHOPRIM [Concomitant]
     Active Substance: SULFAMETHOXAZOLE\TRIMETHOPRIM

REACTIONS (5)
  - Neutropenia [Not Recovered/Not Resolved]
  - Pyrexia [Not Recovered/Not Resolved]
  - Infection [Not Recovered/Not Resolved]
  - Blood glucose decreased [Not Recovered/Not Resolved]
  - Chronic obstructive pulmonary disease [None]

NARRATIVE: CASE EVENT DATE: 20250701
